FAERS Safety Report 11654697 (Version 1)
Quarter: 2015Q4

REPORT INFORMATION
  Report Type: Spontaneous
  Country: US (occurrence: None)
  Receive Date: 20151022
  Receipt Date: 20151022
  Transmission Date: 20160304
  Serious: Yes (Hospitalization)
  Sender: FDA-Public Use
  Company Number: None

PATIENT
  Age: 44 Year
  Sex: Female
  Weight: 47 kg

DRUGS (1)
  1. CISPLATIN. [Suspect]
     Active Substance: CISPLATIN
     Dates: end: 20151007

REACTIONS (8)
  - Asthenia [None]
  - Suprapubic pain [None]
  - Fatigue [None]
  - Constipation [None]
  - Urinary tract infection [None]
  - Nausea [None]
  - Micturition urgency [None]
  - Dehydration [None]

NARRATIVE: CASE EVENT DATE: 20151016
